FAERS Safety Report 9470267 (Version 1)
Quarter: 2013Q3

REPORT INFORMATION
  Report Type: Spontaneous
  Country: US (occurrence: US)
  Receive Date: 20130822
  Receipt Date: 20130822
  Transmission Date: 20140515
  Serious: No
  Sender: FDA-Public Use
  Company Number: US-SANOFI-AVENTIS-2013SA062379

PATIENT
  Sex: Female

DRUGS (2)
  1. MULTAQ [Suspect]
     Indication: ATRIAL FIBRILLATION
     Route: 048
  2. WARFARIN [Concomitant]

REACTIONS (7)
  - Hearing impaired [Unknown]
  - Pruritus [Unknown]
  - Scab [Unknown]
  - Infection [Unknown]
  - Dizziness [Unknown]
  - Somnolence [Recovered/Resolved]
  - Drug administration error [Unknown]
